FAERS Safety Report 4578467-8 (Version None)
Quarter: 2005Q1

REPORT INFORMATION
  Report Type: 
  Country: None (occurrence: None)
  Receive Date: 20050202
  Receipt Date: 20050202
  Transmission Date: 20050727
  Serious: Yes (Disabling)
  Sender: FDA-Public Use
  Company Number: None

PATIENT
  Age: 74 Year
  Sex: Female
  Weight: 90.7194 kg

DRUGS (5)
  1. ZESTRIL [Suspect]
     Indication: HYPERTENSION
     Dosage: 1 ORAL /DAY
     Route: 048
  2. SLO-BID [Concomitant]
  3. SEREVENT [Concomitant]
  4. FLOVENT [Concomitant]
  5. PEPCID [Concomitant]

REACTIONS (1)
  - SENSATION OF HEAVINESS [None]
